FAERS Safety Report 19030429 (Version 1)
Quarter: 2021Q1

REPORT INFORMATION
  Report Type: Spontaneous
  Country: GB (occurrence: GB)
  Receive Date: 20210319
  Receipt Date: 20210319
  Transmission Date: 20210420
  Serious: Yes (Hospitalization)
  Sender: FDA-Public Use
  Company Number: GB-DEXPHARM-20210339

PATIENT
  Age: 85 Year
  Sex: Male

DRUGS (17)
  1. BISOPROLOL [Concomitant]
     Active Substance: BISOPROLOL
  2. HYDROMOL OINTMENT [Concomitant]
     Active Substance: PARAFFIN\WAX, EMULSIFYING
     Dosage: APPLY AS NEEDED ; AS NECESSARY
  3. RAMIPRIL. [Concomitant]
     Active Substance: RAMIPRIL
     Dosage: AT NIGHT
  4. SODIUM HYALURONATE [Concomitant]
     Active Substance: HYALURONATE SODIUM
     Dosage: 0.2%
  5. VOLTAROL [Concomitant]
     Active Substance: DICLOFENAC SODIUM
     Dosage: 1.16% APPLY THREE OR FOUR TIMES A DAY
  6. OMEPRAZOLE. [Suspect]
     Active Substance: OMEPRAZOLE
     Dosage: 2 SEPARATED DOSES
  7. FOLIC ACID. [Concomitant]
     Active Substance: FOLIC ACID
  8. GLICLAZIDE [Concomitant]
     Active Substance: GLICLAZIDE
     Dosage: TWO TO BE TAKEN DAILY WITH BREAKFAST AND ONE TABLET EVENING 2 SEPARATED DOSES
  9. QUININE [Concomitant]
     Active Substance: QUININE
  10. APIXABAN [Concomitant]
     Active Substance: APIXABAN
     Dosage: 2 SEPARATED DOSES
  11. BUMETANIDE. [Concomitant]
     Active Substance: BUMETANIDE
     Dosage: MORNING AND AT LUNCH 2 SEPARATED DOSES
  12. ATORVASTATIN [Concomitant]
     Active Substance: ATORVASTATIN
  13. MIRABEGRON [Concomitant]
     Active Substance: MIRABEGRON
  14. ACIDEX [Concomitant]
     Dosage: ONE OR TWO 5ML SPOONFULS TO BE TAKEN AFTER MEALS AND AT BEDTIME
  15. EPLERENONE. [Concomitant]
     Active Substance: EPLERENONE
  16. FERROUS FUMARATE [Concomitant]
     Active Substance: FERROUS FUMARATE
     Dosage: 3 SEPARATED DOSES
  17. METFORMIN [Concomitant]
     Active Substance: METFORMIN HYDROCHLORIDE
     Dosage: 2 SEPARATED DOSES

REACTIONS (2)
  - Blood calcium decreased [Recovered/Resolved]
  - Blood magnesium decreased [Recovered/Resolved]
